FAERS Safety Report 14405803 (Version 1)
Quarter: 2018Q1

REPORT INFORMATION
  Report Type: Spontaneous
  Country: FI (occurrence: FI)
  Receive Date: 20180118
  Receipt Date: 20180118
  Transmission Date: 20180509
  Serious: Yes (Other)
  Sender: FDA-Public Use
  Company Number: FI-MYLANLABS-2018M1003042

PATIENT
  Age: 72 Year
  Sex: Male

DRUGS (13)
  1. CYCLOSPORINE. [Suspect]
     Active Substance: CYCLOSPORINE
     Indication: ULCERATIVE KERATITIS
     Dosage: EVERY SIX HOURS
     Route: 047
  2. COPEGUS [Suspect]
     Active Substance: RIBAVIRIN
     Indication: HEPATITIS C
     Dosage: 1000 MG DERIVED INTO TWO DOSES (400 MG + 600 MG) DAILY
     Route: 065
  3. PREDNISOLONE. [Suspect]
     Active Substance: PREDNISOLONE
     Dosage: 60MG AND THEN TAPERED SLOWLY
     Route: 048
  4. CHLORAMPHENICOL W/DEXAMETHASONE [Suspect]
     Active Substance: CHLORAMPHENICOL\DEXAMETHASONE
     Dosage: EVERY SIX HOURS
     Route: 065
  5. CHLORAMPHENICOL [Concomitant]
     Active Substance: CHLORAMPHENICOL
     Indication: ULCERATIVE KERATITIS
     Dosage: UNK
  6. PREDNISOLONE. [Suspect]
     Active Substance: PREDNISOLONE
     Dosage: 60MG DAILY
     Route: 048
  7. PREDNISOLONE. [Suspect]
     Active Substance: PREDNISOLONE
     Indication: ULCERATIVE KERATITIS
     Dosage: 500MG
     Route: 042
  8. PEGINTRON [Suspect]
     Active Substance: PEGINTERFERON ALFA-2B
     Indication: HEPATITIS C
     Dosage: 100 ?G, QW
     Route: 065
  9. FOLIC ACID. [Concomitant]
     Active Substance: FOLIC ACID
     Indication: PRODUCT USED FOR UNKNOWN INDICATION
     Dosage: 5 MG, QW
  10. CHLORAMPHENICOL W/DEXAMETHASONE [Suspect]
     Active Substance: CHLORAMPHENICOL\DEXAMETHASONE
     Indication: ULCERATIVE KERATITIS
     Dosage: UNK
     Route: 047
  11. PREDNISOLONE. [Suspect]
     Active Substance: PREDNISOLONE
     Dosage: 5 MG EVERY 4 DAYS
     Route: 048
  12. OFLOXACIN. [Suspect]
     Active Substance: OFLOXACIN
     Indication: ULCERATIVE KERATITIS
     Dosage: EVERY SIX HOURS
     Route: 047
  13. METHOTREXATE. [Concomitant]
     Active Substance: METHOTREXATE
     Indication: ULCERATIVE KERATITIS
     Dosage: 10MG

REACTIONS (2)
  - Hyperglycaemia [Unknown]
  - Neutropenia [Unknown]
